FAERS Safety Report 7990406-6 (Version None)
Quarter: 2011Q4

REPORT INFORMATION
  Report Type: 
  Country: None (occurrence: None)
  Receive Date: 20111219
  Receipt Date: 20110427
  Transmission Date: 20120403
  Serious: No
  Sender: FDA-Public Use
  Company Number: US-ASTRAZENECA-2011SE24156

PATIENT
  Sex: Female

DRUGS (4)
  1. CRESTOR [Suspect]
     Route: 048
     Dates: start: 20110301
  2. BYSTOLIC [Concomitant]
  3. ASPIRIN [Concomitant]
  4. CRESTOR [Suspect]
     Route: 048
     Dates: start: 20110401

REACTIONS (5)
  - MEMORY IMPAIRMENT [None]
  - MYALGIA [None]
  - HEADACHE [None]
  - PALPITATIONS [None]
  - ASTHENIA [None]
